FAERS Safety Report 7251603-0 (Version None)
Quarter: 2011Q1

REPORT INFORMATION
  Report Type: 
  Country: None (occurrence: None)
  Receive Date: 20110128
  Receipt Date: 20110125
  Transmission Date: 20110831
  Serious: Yes (Other)
  Sender: FDA-Public Use
  Company Number: US-PFIZER INC-2011017907

PATIENT
  Sex: Male

DRUGS (2)
  1. ZOLOFT [Suspect]
     Indication: DEPRESSION
     Dosage: 150 MG, DAILY
     Route: 048
     Dates: start: 20101101
  2. MIRTAZAPINE [Concomitant]
     Dosage: UNK

REACTIONS (4)
  - OESOPHAGEAL PAIN [None]
  - DEPRESSION [None]
  - THROAT TIGHTNESS [None]
  - FOOD ALLERGY [None]
